FAERS Safety Report 7877184-6 (Version None)
Quarter: 2011Q4

REPORT INFORMATION
  Report Type: 
  Country: None (occurrence: None)
  Receive Date: 20111031
  Receipt Date: 20111017
  Transmission Date: 20120403
  Serious: Yes (Hospitalization)
  Sender: FDA-Public Use
  Company Number: JP-ROCHE-649106

PATIENT
  Sex: Female
  Weight: 60 kg

DRUGS (19)
  1. ACTEMRA [Suspect]
     Route: 041
     Dates: start: 20081205, end: 20081205
  2. ACTEMRA [Suspect]
     Route: 041
     Dates: start: 20090306, end: 20090306
  3. PNEUMOVAX 23 [Concomitant]
     Dosage: PNEUMOVAX NP
     Route: 058
     Dates: start: 20090110, end: 20090110
  4. ACTEMRA [Suspect]
     Route: 041
     Dates: start: 20090407, end: 20090407
  5. PREDNISOLONE [Concomitant]
     Dosage: DOSE FORM: PERORAL AGENT
     Route: 048
     Dates: start: 20071215, end: 20080125
  6. FAMOTIDINE [Concomitant]
     Route: 048
     Dates: start: 20081107, end: 20090316
  7. AZULFIDINE [Concomitant]
     Dosage: DOSE FORM: ENTERIC COATING DRUG
     Route: 048
  8. ACTEMRA [Suspect]
     Indication: RHEUMATOID ARTHRITIS
     Route: 041
     Dates: start: 20081107, end: 20081107
  9. ACTEMRA [Suspect]
     Route: 041
  10. DICLOFENAC SODIUM [Concomitant]
     Dosage: DOSE FORM: PERORAL AGENT
     Route: 048
  11. ACTEMRA [Suspect]
     Route: 041
     Dates: start: 20090109, end: 20090109
  12. ACTEMRA [Suspect]
     Route: 041
     Dates: start: 20090206, end: 20090206
  13. ACTEMRA [Suspect]
     Route: 041
     Dates: start: 20090508, end: 20090508
  14. ANETHOLTRITHION [Concomitant]
     Dosage: DRUG NAME: FELVITEN
     Route: 048
  15. ACTEMRA [Suspect]
  16. LEVOTHYROXINE SODIUM [Concomitant]
     Route: 048
  17. PREDNISOLONE [Concomitant]
     Dosage: DOSE FORM: PERORAL AGENT
     Route: 048
     Dates: start: 20070718, end: 20071214
  18. PREDNISOLONE [Concomitant]
     Dosage: DOSE FORM: PERORAL AGENT
     Route: 048
  19. EVOXAC [Concomitant]
     Route: 048
     Dates: start: 20081107, end: 20090316

REACTIONS (2)
  - ILEUS [None]
  - THROMBOCYTOPENIA [None]
